FAERS Safety Report 6556922-9 (Version None)
Quarter: 2010Q1

REPORT INFORMATION
  Report Type: 
  Country: None (occurrence: None)
  Receive Date: 20100128
  Receipt Date: 20100120
  Transmission Date: 20100710
  Serious: Yes (Hospitalization, Other)
  Sender: FDA-Public Use
  Company Number: BR-ABBOTT-08P-020-0458047-00

PATIENT
  Sex: Female
  Weight: 55 kg

DRUGS (18)
  1. HUMIRA [Suspect]
     Indication: RHEUMATOID ARTHRITIS
     Route: 058
     Dates: start: 20060926, end: 20090901
  2. HUMIRA [Suspect]
     Dates: start: 20091123, end: 20100114
  3. UNCARIA TOMENTOSA/CUPHEA BALSAMONA/MAYTENUS ILICIFOLIA (HERBS) [Suspect]
     Indication: DRUG USE FOR UNKNOWN INDICATION
     Dosage: 1 SOUP SPOON A DAY
  4. METHOTREXATE [Concomitant]
     Indication: RHEUMATOID ARTHRITIS
     Dosage: 6 TABS IN SEVEN DAYS
     Route: 048
  5. CHLOROQUINE SULFATE, CHONDROITIN SULFATE [Concomitant]
     Indication: RHEUMATOID ARTHRITIS
     Route: 048
     Dates: end: 20090501
  6. TANDRILAX [Concomitant]
     Indication: PAIN
     Route: 048
  7. TYLEX [Concomitant]
     Indication: PAIN
     Dates: start: 20090622
  8. NIMESULIDE, RANITIDINE, PARACETAMOL (MAGISTRAL FORMULA) [Concomitant]
     Indication: DRUG USE FOR UNKNOWN INDICATION
     Dosage: NIMESULIDE 100 MG, RANITIDINE 150 MG, AND PARACETAMOL 500MG IN 12 DAYS
     Route: 048
     Dates: start: 20090623, end: 20090715
  9. ACETYLSALICYLIC ACID [Concomitant]
     Indication: PROPHYLAXIS
     Route: 048
     Dates: start: 20090601
  10. SIMVASTATIN [Concomitant]
     Indication: BLOOD CHOLESTEROL INCREASED
     Route: 048
     Dates: start: 20090601
  11. TRAMADOL/CYCLOBENZAPRINE [Concomitant]
     Indication: DRUG USE FOR UNKNOWN INDICATION
     Route: 048
     Dates: start: 20090901
  12. PREDNISONE [Concomitant]
     Indication: RHEUMATOID ARTHRITIS
     Route: 048
  13. PREDNISONE [Concomitant]
     Route: 048
  14. PREDNISONE [Concomitant]
     Route: 048
  15. PREDNISONE [Concomitant]
     Route: 048
  16. PREDNISONE [Concomitant]
     Route: 048
  17. FOLIC ACID [Concomitant]
     Indication: RHEUMATOID ARTHRITIS
     Route: 048
  18. GLUCOSAMINE + CHONDROITIN [Concomitant]
     Indication: RHEUMATOID ARTHRITIS
     Dosage: 1.5 MG/ 1.2 MG

REACTIONS (18)
  - ABDOMINAL PAIN [None]
  - AORTIC ANEURYSM [None]
  - ARTHRALGIA [None]
  - BLOOD URINE PRESENT [None]
  - BONE EROSION [None]
  - FALL [None]
  - GASTROINTESTINAL INFECTION [None]
  - INJECTION SITE NODULE [None]
  - INJECTION SITE PAIN [None]
  - JOINT RANGE OF MOTION DECREASED [None]
  - MOBILITY DECREASED [None]
  - MUSCULOSKELETAL PAIN [None]
  - NEPHROLITHIASIS [None]
  - OEDEMA PERIPHERAL [None]
  - OSTEOARTHRITIS [None]
  - PAIN IN EXTREMITY [None]
  - THROMBOSIS [None]
  - URINARY TRACT INFECTION [None]
